FAERS Safety Report 23488897 (Version 4)
Quarter: 2024Q1

REPORT INFORMATION
  Report Type: Spontaneous
  Country: US (occurrence: US)
  Receive Date: 20240206
  Receipt Date: 20240325
  Transmission Date: 20240409
  Serious: Yes (Other)
  Sender: FDA-Public Use
  Company Number: US-MIRATI-MT2024PM05725

PATIENT

DRUGS (4)
  1. KRAZATI [Suspect]
     Active Substance: ADAGRASIB
     Indication: Pancreatic carcinoma
     Dosage: 200 MG, BID
     Route: 048
     Dates: start: 20240103
  2. KRAZATI [Suspect]
     Active Substance: ADAGRASIB
     Indication: Pancreatic carcinoma
     Dosage: 400 MG, BID
     Route: 048
     Dates: start: 20240124, end: 20240202
  3. KRAZATI [Suspect]
     Active Substance: ADAGRASIB
     Indication: Pancreatic carcinoma
     Dosage: 200 MG, BID
     Route: 048
     Dates: start: 20240207
  4. KRAZATI [Suspect]
     Active Substance: ADAGRASIB
     Dosage: 400 MG, BID
     Route: 048
     Dates: start: 202402, end: 20240311

REACTIONS (8)
  - Haematochezia [Not Recovered/Not Resolved]
  - Hypersensitivity [Recovering/Resolving]
  - Haemorrhoids [Unknown]
  - Urticaria [Recovered/Resolved]
  - Diarrhoea [Not Recovered/Not Resolved]
  - Myalgia [Not Recovered/Not Resolved]
  - Abdominal pain upper [Unknown]
  - Off label use [Unknown]

NARRATIVE: CASE EVENT DATE: 20240103
